FAERS Safety Report 12329144 (Version 5)
Quarter: 2016Q2

REPORT INFORMATION
  Report Type: Spontaneous
  Country: IT (occurrence: IT)
  Receive Date: 20160503
  Receipt Date: 20160523
  Transmission Date: 20160815
  Serious: Yes (Hospitalization)
  Sender: FDA-Public Use
  Company Number: IT-009507513-1604ITA017220

PATIENT
  Age: 73 Year
  Sex: Female

DRUGS (4)
  1. VIEKIRAX [Suspect]
     Active Substance: OMBITASVIR\PARITAPREVIR\RITONAVIR
     Indication: HEPATIC CIRRHOSIS
     Dosage: DAILY DOSE: 2 DOSE UNITS DAILY
     Route: 048
     Dates: start: 20160118, end: 20160224
  2. REBETOL [Suspect]
     Active Substance: RIBAVIRIN
     Indication: HEPATIC CIRRHOSIS
     Dosage: TOTAL DAILY DOSE: 4 DOSE DAILY
     Route: 048
     Dates: start: 20160118, end: 20160224
  3. DEURSIL [Concomitant]
     Active Substance: URSODIOL
     Indication: CHOLELITHIASIS
     Route: 048
  4. EXVIERA [Suspect]
     Active Substance: DASABUVIR
     Indication: HEPATIC CIRRHOSIS
     Dosage: DAILY DOSE: 2 DOSE UNITS DAILY
     Route: 048
     Dates: start: 20160127, end: 20160217

REACTIONS (2)
  - Ascites [Recovered/Resolved]
  - Oedema peripheral [Recovered/Resolved]

NARRATIVE: CASE EVENT DATE: 20160205
